FAERS Safety Report 23968108 (Version 1)
Quarter: 2024Q2

REPORT INFORMATION
  Report Type: Spontaneous
  Country: US (occurrence: US)
  Receive Date: 20240612
  Receipt Date: 20240612
  Transmission Date: 20240716
  Serious: No
  Sender: FDA-Public Use
  Company Number: US-PERRIGO-23US009690

PATIENT
  Age: 68 Year
  Sex: Male
  Weight: 86.168 kg

DRUGS (1)
  1. DICLOFENAC SODIUM [Suspect]
     Active Substance: DICLOFENAC\DICLOFENAC SODIUM
     Indication: Ligament sprain
     Dosage: 4 G, BID
     Route: 061
     Dates: start: 20230827

REACTIONS (1)
  - Drug effective for unapproved indication [Unknown]

NARRATIVE: CASE EVENT DATE: 20230827
